FAERS Safety Report 9563797 (Version 1)
Quarter: 2013Q3

REPORT INFORMATION
  Report Type: Spontaneous
  Country: US (occurrence: None)
  Receive Date: 20130926
  Receipt Date: 20130926
  Transmission Date: 20140515
  Serious: No
  Sender: FDA-Public Use
  Company Number: None

PATIENT
  Age: 60 Year
  Sex: Female
  Weight: 77.11 kg

DRUGS (1)
  1. GILENYA [Suspect]

REACTIONS (3)
  - Myocardial infarction [None]
  - Quality of life decreased [None]
  - Impaired driving ability [None]
